FAERS Safety Report 9852080 (Version 3)
Quarter: 2014Q1

REPORT INFORMATION
  Report Type: Spontaneous
  Country: US (occurrence: US)
  Receive Date: 20140129
  Receipt Date: 20140206
  Transmission Date: 20141002
  Serious: No
  Sender: FDA-Public Use
  Company Number: US-PFIZER INC-2014022685

PATIENT
  Age: 57 Year
  Sex: Male

DRUGS (12)
  1. ENBREL [Suspect]
     Indication: RHEUMATOID ARTHRITIS
     Dosage: UNK
  2. ENBREL [Suspect]
     Indication: RHEUMATOID ARTHRITIS
  3. XELJANZ [Suspect]
     Dosage: UNK
  4. PREDNISONE [Suspect]
     Dosage: 5 MG, ONCE DAILY
  5. PREDNISONE [Suspect]
     Dosage: 2.5 MG, ONCE A DAY
  6. HUMIRA [Suspect]
     Indication: RHEUMATOID ARTHRITIS
     Dosage: UNK
  7. ARAVA [Suspect]
     Dosage: 20 MG, DAILY
     Dates: end: 2009
  8. RITUXAN [Suspect]
     Dosage: 1,000 MG TWICE IN TWO WEEKS EVERY SIX MONTHS
  9. IMURAN [Suspect]
     Dosage: 100 MG, A DAY
  10. NAPROXEN [Suspect]
     Dosage: 500 MG, TWICE DAILY
  11. NEXIUM [Suspect]
     Dosage: UNK
  12. PLAQUENIL [Suspect]
     Indication: RHEUMATOID ARTHRITIS
     Dosage: UNK

REACTIONS (22)
  - Drug ineffective [Unknown]
  - C-reactive protein increased [Unknown]
  - Rheumatoid factor increased [Unknown]
  - Anti-cyclic citrullinated peptide antibody positive [Unknown]
  - Arthralgia [Unknown]
  - Musculoskeletal discomfort [Unknown]
  - Joint swelling [Unknown]
  - Fatigue [Unknown]
  - Pleural fibrosis [Unknown]
  - Glucose urine [Unknown]
  - Protein urine [Unknown]
  - Upper respiratory tract infection [Not Recovered/Not Resolved]
  - Wheezing [Not Recovered/Not Resolved]
  - Neck pain [Unknown]
  - Hypotension [Unknown]
  - Cough [Not Recovered/Not Resolved]
  - Panic attack [Recovered/Resolved]
  - Respiratory tract congestion [Not Recovered/Not Resolved]
  - Immune system disorder [Not Recovered/Not Resolved]
  - Dyspnoea [Unknown]
  - Radiculopathy [Unknown]
  - Lymphocyte count abnormal [Unknown]
